FAERS Safety Report 15770305 (Version 1)
Quarter: 2018Q4

REPORT INFORMATION
  Report Type: Spontaneous
  Country: US (occurrence: US)
  Receive Date: 20181227
  Receipt Date: 20181227
  Transmission Date: 20190205
  Serious: Yes (Other)
  Sender: FDA-Public Use
  Company Number: None

PATIENT
  Age: 61 Year
  Sex: Female

DRUGS (1)
  1. LEVOFLOXACIN. [Suspect]
     Active Substance: LEVOFLOXACIN
     Route: 048
     Dates: start: 20181220, end: 20181224

REACTIONS (4)
  - Feeling abnormal [None]
  - Pain [None]
  - Hallucination, auditory [None]
  - Muscle spasms [None]

NARRATIVE: CASE EVENT DATE: 20181222
